FAERS Safety Report 9282868 (Version 1)
Quarter: 2013Q2

REPORT INFORMATION
  Report Type: Spontaneous
  Country: US (occurrence: US)
  Receive Date: 20130510
  Receipt Date: 20130510
  Transmission Date: 20140414
  Serious: Yes (Other)
  Sender: FDA-Public Use
  Company Number: US-JNJFOC-20130501017

PATIENT
  Sex: Female
  Weight: 63.5 kg

DRUGS (4)
  1. TOPAMAX [Suspect]
     Indication: MIGRAINE PROPHYLAXIS
     Dosage: TWO 25 MG TABLETS 3 TIMES A DAY
     Route: 048
  2. TOPAMAX [Suspect]
     Indication: MIGRAINE PROPHYLAXIS
     Dosage: TWO 25 MG TABLETS TWO TIMES A DAY
     Route: 048
  3. TOPAMAX [Suspect]
     Indication: MIGRAINE PROPHYLAXIS
     Dosage: TWO 25 MG TABLETS TWO TIMES A DAY
     Route: 048
  4. UNSPECIFIED TOPIRAMATE [Suspect]
     Indication: MIGRAINE PROPHYLAXIS
     Route: 048

REACTIONS (2)
  - Coeliac disease [Recovering/Resolving]
  - Drug effect decreased [Recovered/Resolved]
